FAERS Safety Report 8541240 (Version 3)
Quarter: 2013Q3

REPORT INFORMATION
  Report Type: Report from Study
  Country: US (occurrence: US)
  Receive Date: 20120502
  Receipt Date: 20130807
  Transmission Date: 20140515
  Serious: Yes (Other)
  Sender: FDA-Public Use
  Company Number: PHEH2012US007431

PATIENT
  Age: 50 Year
  Sex: Female
  Weight: 65.31 kg

DRUGS (6)
  1. GILENYA [Suspect]
     Indication: MULTIPLE SCLEROSIS
     Dosage: 0.5 MG, QD
     Route: 048
     Dates: start: 201201
  2. FISH OIL [Concomitant]
     Route: 048
  3. CALCIUM [Concomitant]
     Route: 048
  4. VITAMIN C [Concomitant]
     Route: 048
  5. VITAMIN D [Concomitant]
     Route: 048
  6. TERBINAFINE [Concomitant]

REACTIONS (4)
  - Anogenital warts [Recovering/Resolving]
  - Vitamin D decreased [Recovering/Resolving]
  - Red blood cell count decreased [Recovering/Resolving]
  - Hypertension [Recovering/Resolving]
